FAERS Safety Report 4789396-9 (Version None)
Quarter: 2005Q3

REPORT INFORMATION
  Report Type: 
  Country: None (occurrence: None)
  Receive Date: 20050929
  Receipt Date: 20050727
  Transmission Date: 20060218
  Serious: No
  Sender: FDA-Public Use
  Company Number: 05P-163-0306846-00

PATIENT
  Age: 85 Year
  Sex: Female
  Weight: 77.1115 kg

DRUGS (11)
  1. HUMIRA [Suspect]
     Indication: RHEUMATOID ARTHRITIS
     Dosage: 40 MG, 1 IN 2 WK, SUBCUTANEOUS
     Route: 058
     Dates: start: 20050714
  2. AMLODIPINE BESYLATE [Concomitant]
  3. METOPROLOL TARTRATE [Concomitant]
  4. LEVOTHYROXINE SODIUM [Concomitant]
  5. ZOCOR [Concomitant]
  6. RAMIPRIL [Concomitant]
  7. METHOTREXATE [Concomitant]
  8. ACTENOL [Concomitant]
  9. CELECOXIB [Concomitant]
  10. VATREX [Concomitant]
  11. ASPIRIN [Concomitant]

REACTIONS (1)
  - PSORIASIS [None]
